FAERS Safety Report 9086942 (Version 1)
Quarter: 2013Q1

REPORT INFORMATION
  Report Type: Spontaneous
  Country: US (occurrence: US)
  Receive Date: 20130131
  Receipt Date: 20130131
  Transmission Date: 20140127
  Serious: Yes (Other)
  Sender: FDA-Public Use
  Company Number: US-PFIZER INC-2013039141

PATIENT
  Sex: Female

DRUGS (10)
  1. LYRICA [Suspect]
     Indication: NEURALGIA
     Dosage: 150 MG, 2X/DAY
  2. ZYLOPRIM [Concomitant]
     Indication: GOUT
     Dosage: 100 MG, DAILY AT NIGHT
  3. RANITIDINE [Concomitant]
     Indication: GASTROOESOPHAGEAL REFLUX DISEASE
     Dosage: 150 MG, DAILY
  4. BABY ASPIRIN [Concomitant]
     Dosage: 81 MG, DAILY
  5. MULTIVITAMINS [Concomitant]
     Indication: VITAMIN SUPPLEMENTATION
     Dosage: UNK,DAILY
  6. LIPITOR [Concomitant]
     Indication: BLOOD CHOLESTEROL ABNORMAL
     Dosage: 5 MG, DAILY
  7. ALPHA LIPOIC ACID [Concomitant]
     Dosage: UNK, 2X/DAY(ONCE IN MORNING AND ONCE AT NIGHT)
  8. FUROSEMIDE [Concomitant]
     Indication: BLOOD PRESSURE ABNORMAL
     Dosage: 20 MG, DAILY
  9. LISINOPRIL [Concomitant]
     Indication: BLOOD PRESSURE ABNORMAL
     Dosage: 20 MG, DAILY
  10. LEVOFLOXACIN [Concomitant]
     Indication: THYROID DISORDER
     Dosage: 88 UG, DAILY

REACTIONS (2)
  - Asthma [Unknown]
  - Sinus disorder [Unknown]
